FAERS Safety Report 21931441 (Version 2)
Quarter: 2023Q1

REPORT INFORMATION
  Report Type: Report from Study
  Country: US (occurrence: US)
  Receive Date: 20230131
  Receipt Date: 20230209
  Transmission Date: 20230418
  Serious: No
  Sender: FDA-Public Use
  Company Number: US-AMGEN-USASL2023011888

PATIENT
  Age: 42 Year
  Sex: Female
  Weight: 70.5 kg

DRUGS (2)
  1. NEULASTA [Suspect]
     Active Substance: PEGFILGRASTIM
     Indication: Prophylaxis
     Dosage: 6 MILLIGRAM, Q2WK
     Route: 065
     Dates: start: 20221222
  2. NEULASTA [Suspect]
     Active Substance: PEGFILGRASTIM
     Dosage: 6 MILLIGRAM, Q2WK
     Route: 065
     Dates: start: 20221222

REACTIONS (2)
  - Device adhesion issue [Unknown]
  - Unintentional medical device removal [Unknown]

NARRATIVE: CASE EVENT DATE: 20230119
